FAERS Safety Report 5350134-2 (Version None)
Quarter: 2007Q2

REPORT INFORMATION
  Report Type: 
  Country: None (occurrence: None)
  Receive Date: 20070607
  Receipt Date: 20070604
  Transmission Date: 20071010
  Serious: Yes (Hospitalization, Other)
  Sender: FDA-Public Use
  Company Number: US-MERCK-0704USA00714

PATIENT
  Age: 67 Year
  Sex: Female

DRUGS (11)
  1. DECADRON [Suspect]
     Indication: WALDENSTROM'S MACROGLOBULINAEMIA
     Route: 048
     Dates: start: 20061202
  2. REVLIMID [Suspect]
     Indication: WALDENSTROM'S MACROGLOBULINAEMIA
     Route: 048
     Dates: start: 20061202, end: 20061218
  3. VALTREX [Concomitant]
     Indication: PROPHYLAXIS
     Route: 065
     Dates: start: 20061121
  4. DAPSONE [Concomitant]
     Indication: PROPHYLAXIS
     Route: 065
     Dates: start: 20020617
  5. NEXIUM [Concomitant]
     Indication: GASTROOESOPHAGEAL REFLUX DISEASE
     Route: 065
     Dates: start: 20050829
  6. FOSAMAX [Concomitant]
     Indication: BONE DISORDER
     Route: 048
     Dates: start: 20020101
  7. ASPIRIN [Concomitant]
     Indication: ANTICOAGULANT THERAPY
     Route: 065
  8. DETROL LA [Concomitant]
     Indication: INCONTINENCE
     Route: 065
     Dates: start: 20020101
  9. DOCUSATE SODIUM [Concomitant]
     Indication: CONSTIPATION
     Route: 065
     Dates: start: 20020101
  10. ULTRAM [Concomitant]
     Indication: PAIN
     Route: 048
     Dates: start: 20020402
  11. AMBIEN [Concomitant]
     Indication: INSOMNIA
     Route: 065
     Dates: start: 20030917

REACTIONS (9)
  - ANOREXIA [None]
  - DEHYDRATION [None]
  - DISORIENTATION [None]
  - FATIGUE [None]
  - HYPOTENSION [None]
  - JAUNDICE [None]
  - LIVER FUNCTION TEST ABNORMAL [None]
  - MALNUTRITION [None]
  - WEIGHT DECREASED [None]
